FAERS Safety Report 5042882-9 (Version None)
Quarter: 2006Q3

REPORT INFORMATION
  Report Type: 
  Country: None (occurrence: None)
  Receive Date: 20060705
  Receipt Date: 20060627
  Transmission Date: 20061208
  Serious: Yes (Life-Threatening)
  Sender: FDA-Public Use
  Company Number: ES-GLAXOSMITHKLINE-B0429704A

PATIENT
  Age: 87 Year
  Sex: Male

DRUGS (5)
  1. AUGMENTIN '125' [Suspect]
     Indication: DRUG USE FOR UNKNOWN INDICATION
     Dosage: .86G THREE TIMES PER DAY
     Route: 048
     Dates: start: 20050816, end: 20050928
  2. TAZOCEL [Suspect]
     Dosage: 4G THREE TIMES PER DAY
     Route: 042
     Dates: start: 20050831, end: 20050902
  3. COLCHICINE [Suspect]
     Dosage: 1MG TWICE PER DAY
     Route: 048
     Dates: start: 20050816
  4. RENITEC [Concomitant]
     Route: 048
  5. NEXIUM [Concomitant]

REACTIONS (3)
  - DEHYDRATION [None]
  - DIARRHOEA [None]
  - RENAL FAILURE ACUTE [None]
